FAERS Safety Report 7210618-9 (Version None)
Quarter: 2010Q4

REPORT INFORMATION
  Report Type: 
  Country: None (occurrence: None)
  Receive Date: 20101227
  Receipt Date: 20101214
  Transmission Date: 20110411
  Serious: Yes (Congenital Anomaly)
  Sender: FDA-Public Use
  Company Number: 1000017759

PATIENT
  Sex: Male
  Weight: 4.04 kg

DRUGS (3)
  1. LEXAPRO [Suspect]
     Dosage: 20 MG (20 MG, 1 IN 1 D), TRANSPLACENTAL
     Route: 064
     Dates: start: 20090713, end: 20101202
  2. PRENATAL VITAMIN (PRENATAL VITAMIN) (PRENATAL VITAMIN) [Concomitant]
  3. FISH OIL (FISH OIL) (FISH OIL) [Concomitant]

REACTIONS (5)
  - ANKYLOGLOSSIA CONGENITAL [None]
  - CAESAREAN SECTION [None]
  - FACE PRESENTATION [None]
  - MATERNAL DRUGS AFFECTING FOETUS [None]
  - MECONIUM IN AMNIOTIC FLUID [None]
